FAERS Safety Report 15614020 (Version 1)
Quarter: 2018Q4

REPORT INFORMATION
  Report Type: Spontaneous
  Country: US (occurrence: US)
  Receive Date: 20181113
  Receipt Date: 20181113
  Transmission Date: 20190205
  Serious: Yes (Other)
  Sender: FDA-Public Use
  Company Number: US-PFIZER INC-2018463130

PATIENT
  Sex: Female

DRUGS (1)
  1. PREMARIN [Suspect]
     Active Substance: ESTROGENS, CONJUGATED
     Indication: HYSTERECTOMY
     Dosage: UNK UNK, 2X/WEEK
     Route: 067

REACTIONS (4)
  - Intentional dose omission [Unknown]
  - Urinary tract infection fungal [Unknown]
  - Stress [Unknown]
  - Urinary tract infection [Unknown]
